FAERS Safety Report 20777586 (Version 1)
Quarter: 2022Q2

REPORT INFORMATION
  Report Type: Spontaneous
  Country: US (occurrence: None)
  Receive Date: 20220502
  Receipt Date: 20220502
  Transmission Date: 20220721
  Serious: No
  Sender: FDA-Public Use
  Company Number: None

PATIENT
  Age: 83 Year
  Sex: Female

DRUGS (1)
  1. BEBTELOVIMAB [Suspect]
     Active Substance: BEBTELOVIMAB
     Route: 042
     Dates: start: 20220427, end: 20220427

REACTIONS (4)
  - Hypotension [None]
  - Flushing [None]
  - Abdominal pain [None]
  - Injection related reaction [None]

NARRATIVE: CASE EVENT DATE: 20220427
